FAERS Safety Report 8916757 (Version 1)
Quarter: 2012Q4

REPORT INFORMATION
  Report Type: 
  Country: US (occurrence: US)
  Receive Date: 20121120
  Receipt Date: 20121120
  Transmission Date: 20130627
  Serious: No
  Sender: FDA-Public Use
  Company Number: US-009507513-1211USA007676

PATIENT
  Sex: Female

DRUGS (4)
  1. SAPHRIS [Suspect]
     Indication: SCHIZOAFFECTIVE DISORDER
     Dosage: 10 mg, qd
     Route: 060
  2. LANTUS [Concomitant]
  3. HUMALOG [Concomitant]
  4. METFORMIN [Concomitant]

REACTIONS (7)
  - Balance disorder [Recovering/Resolving]
  - Fall [Recovering/Resolving]
  - Nausea [Recovering/Resolving]
  - Insomnia [Recovering/Resolving]
  - Vomiting [Recovering/Resolving]
  - Dizziness [Recovering/Resolving]
  - Sedation [Recovering/Resolving]
